FAERS Safety Report 8762965 (Version 1)
Quarter: 2012Q4

REPORT INFORMATION
  Report Type: Spontaneous
  Country: US (occurrence: None)
  Receive Date: 20120831
  Receipt Date: 20120831
  Transmission Date: 20130627
  Serious: Yes (Other)
  Sender: FDA-Public Use
  Company Number: None

PATIENT
  Age: 60 Year
  Sex: Female
  Weight: 81.65 kg

DRUGS (2)
  1. AMBIEN [Suspect]
     Dosage: 10 mg 1 at night
     Dates: start: 201103
  2. AMBIEN [Suspect]
     Dates: start: 201109

REACTIONS (3)
  - Nightmare [None]
  - Palpitations [None]
  - Fear [None]
